FAERS Safety Report 10504807 (Version 1)
Quarter: 2014Q3

REPORT INFORMATION
  Report Type: Spontaneous
  Country: US (occurrence: None)
  Receive Date: 20140926
  Receipt Date: 20140926
  Transmission Date: 20150326
  Serious: No
  Sender: FDA-Public Use
  Company Number: 1000068690

PATIENT
  Age: 87 Year
  Sex: Male

DRUGS (7)
  1. LOSARTAN (LOSARTAN) (LOSARTAN) [Concomitant]
     Active Substance: LOSARTAN
  2. LINZESS [Suspect]
     Active Substance: LINACLOTIDE
     Indication: CONSTIPATION
     Dosage: 1 IN 1
     Dates: start: 20140630
  3. FUROSEMIDE (FUROSEMIDE) (FUROSEMIDE) [Concomitant]
     Active Substance: FUROSEMIDE
  4. ATORVASTATIN (ATORVASTATIN) (ATORVASTATIN) [Concomitant]
     Active Substance: ATORVASTATIN
  5. EYE DROPS NOS (EYE DROPS NOS) (EYE DROPS NOS) [Concomitant]
  6. AMLODIPINE [Concomitant]
     Active Substance: AMLODIPINE BESYLATE
  7. KLOR-CON (POTASSIUM CHLORIDE) (POTASSIUM CHLORIDE) [Concomitant]

REACTIONS (1)
  - Diarrhoea [None]

NARRATIVE: CASE EVENT DATE: 20140630
